FAERS Safety Report 5247016-3 (Version None)
Quarter: 2007Q1

REPORT INFORMATION
  Report Type: 
  Country: None (occurrence: None)
  Receive Date: 20070226
  Receipt Date: 20070219
  Transmission Date: 20070707
  Serious: Yes (Hospitalization)
  Sender: FDA-Public Use
  Company Number: GB-GLAXOSMITHKLINE-B0459010A

PATIENT
  Age: 67 Year
  Sex: Male

DRUGS (8)
  1. AVANDAMET [Suspect]
     Dosage: 1TAB TWICE PER DAY
     Route: 048
     Dates: start: 20060201, end: 20070201
  2. GLICLAZIDE [Concomitant]
  3. DUTASTERIDE [Concomitant]
  4. ATORVASTATIN [Concomitant]
  5. TAMSULOSIN HCL [Concomitant]
  6. RAMIPRIL [Concomitant]
  7. LANSOPRAZOLE [Concomitant]
  8. QUININE SULFATE [Concomitant]

REACTIONS (1)
  - PULMONARY OEDEMA [None]
